FAERS Safety Report 18819734 (Version 2)
Quarter: 2021Q1

REPORT INFORMATION
  Report Type: Spontaneous
  Country: RO (occurrence: RO)
  Receive Date: 20210202
  Receipt Date: 20210309
  Transmission Date: 20210419
  Serious: No
  Sender: FDA-Public Use
  Company Number: RO-BEH-2021127690

PATIENT
  Age: 59 Year
  Sex: Female

DRUGS (7)
  1. HUMAN IMMUNOGLOBULIN (NC) (IMMUNOGLOBULIN HUMAN NORMAL) [Suspect]
     Active Substance: HUMAN IMMUNOGLOBULIN G
     Indication: PARANEOPLASTIC NEUROLOGICAL SYNDROME
     Dosage: DAY 1 TOTAL DOSE WAS 27.5G WITH 25ML/H
     Route: 042
  2. HUMAN IMMUNOGLOBULIN (NC) (IMMUNOGLOBULIN HUMAN NORMAL) [Suspect]
     Active Substance: HUMAN IMMUNOGLOBULIN G
     Dosage: DAY 5, 27.5G WITH 100ML/HR
     Route: 042
  3. CARBOPLATIN. [Suspect]
     Active Substance: CARBOPLATIN
     Indication: OVARIAN CANCER
     Dosage: 200 MILLIGRAM, QW
     Route: 065
  4. PACLITAXEL. [Suspect]
     Active Substance: PACLITAXEL
     Indication: OVARIAN CANCER
     Dosage: 80 MG/MP
     Route: 065
  5. PACLITAXEL. [Suspect]
     Active Substance: PACLITAXEL
     Dosage: 3 CYCLES TCQ3W PACLITAXEL 175 MG/MP
  6. HUMAN IMMUNOGLOBULIN (NC) (IMMUNOGLOBULIN HUMAN NORMAL) [Suspect]
     Active Substance: HUMAN IMMUNOGLOBULIN G
     Indication: ACUTE POLYNEUROPATHY
     Dosage: DAYS 2?4 DOSE 25G WITH 50ML/HR
     Route: 042
  7. CARBOPLATIN. [Suspect]
     Active Substance: CARBOPLATIN
     Dosage: 5 AUC TOTAL DOSE 500 MG
     Route: 065

REACTIONS (2)
  - Drug ineffective for unapproved indication [Fatal]
  - Off label use [Fatal]
